FAERS Safety Report 7086117-4 (Version None)
Quarter: 2010Q4

REPORT INFORMATION
  Report Type: 
  Country: None (occurrence: None)
  Receive Date: 20101105
  Receipt Date: 20101028
  Transmission Date: 20110411
  Serious: Yes (Hospitalization)
  Sender: FDA-Public Use
  Company Number: B0679788A

PATIENT
  Age: 36 Year
  Sex: Female

DRUGS (5)
  1. AUGMENTIN '125' [Suspect]
     Indication: SINUSITIS
     Dosage: 1G TWICE PER DAY
     Route: 048
     Dates: start: 20101005, end: 20101006
  2. FLAGYL [Concomitant]
     Indication: SINUSITIS
     Dates: start: 20101005, end: 20101006
  3. PANADOL [Concomitant]
     Indication: SINUSITIS
     Dates: start: 20101005, end: 20101006
  4. TELFAST [Concomitant]
     Indication: SINUSITIS
     Dates: start: 20101005, end: 20101006
  5. OMEPRAZOLE [Concomitant]
     Indication: GASTRITIS PROPHYLAXIS
     Dates: start: 20101005, end: 20101006

REACTIONS (3)
  - PRURITUS [None]
  - RASH GENERALISED [None]
  - SKIN BURNING SENSATION [None]
